FAERS Safety Report 5229554-2 (Version None)
Quarter: 2007Q1

REPORT INFORMATION
  Report Type: 
  Country: None (occurrence: None)
  Receive Date: 20070201
  Receipt Date: 20070119
  Transmission Date: 20070707
  Serious: Yes (Hospitalization)
  Sender: FDA-Public Use
  Company Number: ENC200700007

PATIENT
  Age: 80 Year
  Sex: Male

DRUGS (16)
  1. ARGATROBAN [Suspect]
     Indication: HEPARIN-INDUCED THROMBOCYTOPENIA
     Dosage: SEE IMAGE
     Route: 042
     Dates: start: 20070101, end: 20070101
  2. ARGATROBAN [Suspect]
     Indication: HEPARIN-INDUCED THROMBOCYTOPENIA
     Dosage: SEE IMAGE
     Route: 042
     Dates: start: 20070101, end: 20070119
  3. VANCOMYCIN [Concomitant]
  4. CLINDAMYCIN [Concomitant]
  5. CEFEPIME [Concomitant]
  6. TYLENOL   /0002001/(PARACETAMOL) [Concomitant]
  7. PROCRIT [Concomitant]
  8. LEXAPRO [Concomitant]
  9. NEPHRO-VITE /0179801/(VITAMINS NOS) [Concomitant]
  10. INSULIN [Concomitant]
  11. COMBIVENT  /01033501 (IPRATROPIUM BROMIDE, SALBUTAMOL) [Concomitant]
  12. SYNTHROID [Concomitant]
  13. MORPHINE [Concomitant]
  14. NITROPASTE (GLYCERYL TRINITRATE) [Concomitant]
  15. PROTONIX  /01263201/ (PANTOPRAZOLE) [Concomitant]
  16. IRON (IRON) [Concomitant]

REACTIONS (5)
  - ACTIVATED PARTIAL THROMBOPLASTIN TIME PROLONGED [None]
  - BLOOD ALKALINE PHOSPHATASE INCREASED [None]
  - BLOOD BILIRUBIN INCREASED [None]
  - INTERNATIONAL NORMALISED RATIO ABNORMAL [None]
  - PROTHROMBIN TIME PROLONGED [None]
